FAERS Safety Report 23850584 (Version 1)
Quarter: 2024Q2

REPORT INFORMATION
  Report Type: Spontaneous
  Country: BR (occurrence: BR)
  Receive Date: 20240513
  Receipt Date: 20240513
  Transmission Date: 20240716
  Serious: Yes (Other)
  Sender: FDA-Public Use
  Company Number: BR-BIOGEN-2024BI01264290

PATIENT
  Sex: Female

DRUGS (1)
  1. DALFAMPRIDINE [Suspect]
     Active Substance: DALFAMPRIDINE
     Indication: Exposure via partner
     Route: 050

REACTIONS (3)
  - Caesarean section [Recovered/Resolved]
  - Premature baby [Recovered/Resolved]
  - Paternal exposure before pregnancy [Recovered/Resolved]

NARRATIVE: CASE EVENT DATE: 20170413
